FAERS Safety Report 22313752 (Version 2)
Quarter: 2023Q2

REPORT INFORMATION
  Report Type: Report from Study
  Country: US (occurrence: None)
  Receive Date: 20230512
  Receipt Date: 20230623
  Transmission Date: 20230722
  Serious: Yes (Other)
  Sender: FDA-Public Use
  Company Number: 2023A107451

PATIENT
  Sex: Male

DRUGS (1)
  1. CALQUENCE [Suspect]
     Active Substance: ACALABRUTINIB
     Route: 048

REACTIONS (5)
  - Blood potassium increased [Unknown]
  - Lymphadenopathy [Unknown]
  - Skin disorder [Unknown]
  - Headache [Unknown]
  - Platelet count decreased [Unknown]
